FAERS Safety Report 13680820 (Version 1)
Quarter: 2017Q2

REPORT INFORMATION
  Report Type: Spontaneous
  Country: US (occurrence: US)
  Receive Date: 20170622
  Receipt Date: 20170622
  Transmission Date: 20170830
  Serious: Yes (Hospitalization)
  Sender: FDA-Public Use
  Company Number: None

PATIENT
  Age: 56 Year
  Sex: Male
  Weight: 59 kg

DRUGS (1)
  1. CISPLATIN. [Suspect]
     Active Substance: CISPLATIN
     Dates: end: 20170522

REACTIONS (12)
  - Dizziness [None]
  - Discomfort [None]
  - Dehydration [None]
  - Blood pressure decreased [None]
  - Heart rate increased [None]
  - Dysphagia [None]
  - Nausea [None]
  - Fatigue [None]
  - Constipation [None]
  - Failure to thrive [None]
  - Weight decreased [None]
  - Wrong technique in product usage process [None]

NARRATIVE: CASE EVENT DATE: 20170605
